FAERS Safety Report 16031227 (Version 1)
Quarter: 2019Q1

REPORT INFORMATION
  Report Type: Spontaneous
  Country: US (occurrence: US)
  Receive Date: 20190304
  Receipt Date: 20190304
  Transmission Date: 20190418
  Serious: No
  Sender: FDA-Public Use
  Company Number: US-B.I. PHARMACEUTICALS,INC./RIDGEFIELD-2019-BI-007710

PATIENT
  Age: 76 Year
  Sex: Male

DRUGS (2)
  1. SYNJARDY XR [Suspect]
     Active Substance: EMPAGLIFLOZIN\METFORMIN HYDROCHLORIDE
     Dosage: FORM STRENGTH: 12.5 MG / 1000 MG?  ?ACTION(S) TAKEN WITH PRODUCT: DOSE NOT CHANGED
     Route: 048
     Dates: start: 20190220
  2. SYNJARDY XR [Suspect]
     Active Substance: EMPAGLIFLOZIN\METFORMIN HYDROCHLORIDE
     Indication: TYPE 2 DIABETES MELLITUS
     Dosage: 12.5 MG / 1000 MG? ADMINISTRATION CORRECT? NO ?ACTION(S) TAKEN WITH PRODUCT: DRUG REDUCED
     Route: 048
     Dates: start: 201811, end: 20190219

REACTIONS (5)
  - Pollakiuria [Unknown]
  - Incorrect dose administered [Recovered/Resolved]
  - Glomerular filtration rate abnormal [Unknown]
  - Abnormal loss of weight [Unknown]
  - Decreased insulin requirement [Unknown]

NARRATIVE: CASE EVENT DATE: 201811
